FAERS Safety Report 8792004 (Version 3)
Quarter: 2013Q3

REPORT INFORMATION
  Report Type: Spontaneous
  Country: US (occurrence: US)
  Receive Date: 20120918
  Receipt Date: 20130710
  Transmission Date: 20140515
  Serious: Yes (Other)
  Sender: FDA-Public Use
  Company Number: US-ASTELLAS-2012US007886

PATIENT
  Sex: Male
  Weight: 61 kg

DRUGS (41)
  1. AMBISOME [Suspect]
     Indication: FUNGAL INFECTION
     Dosage: 300 MG, UID/QD
     Route: 042
     Dates: start: 20120608, end: 20120619
  2. AMBISOME [Suspect]
     Indication: EVIDENCE BASED TREATMENT
  3. LIDOCAINE [Concomitant]
     Indication: CHEST PAIN
     Dosage: UNK
     Route: 062
     Dates: start: 20120607
  4. CYANOCOBALAMIN [Concomitant]
     Indication: VITAMIN SUPPLEMENTATION
     Dosage: 1000 UG, UNKNOWN/D
     Route: 048
     Dates: start: 20120608
  5. VALACYCLOVIR HCL PHARMA PAC [Concomitant]
     Indication: ANTIVIRAL PROPHYLAXIS
     Dosage: UNK, 1000-2000 MG
     Route: 048
     Dates: start: 20120607
  6. DOCUSATE SODIUM [Concomitant]
     Indication: CONSTIPATION
     Dosage: UNK, 100-200 MG
     Route: 048
     Dates: start: 20120607
  7. FAMOTIDINE [Concomitant]
     Indication: PROPHYLAXIS AGAINST GASTROINTESTINAL ULCER
     Dosage: UNK, 20-40 MG
     Route: 048
     Dates: start: 20120607
  8. DUONEB [Concomitant]
     Indication: PNEUMONIA
     Dosage: UNK, 3-12 MG
     Route: 065
     Dates: start: 20120613
  9. ATIVAN [Concomitant]
     Indication: ANXIETY
     Dosage: , 0.5-3.5 MGUNK
     Route: 042
     Dates: start: 20120613, end: 20120731
  10. ATIVAN [Concomitant]
     Indication: NAUSEA
  11. TYLENOL                            /00020001/ [Concomitant]
     Indication: HEADACHE
     Dosage: 650 MG, PRN
     Route: 048
     Dates: start: 20120608
  12. OXYCODONE [Concomitant]
     Indication: PAIN
     Dosage: UNK, 10-40 MG
     Route: 048
     Dates: start: 20120607
  13. OXYCODONE [Concomitant]
     Indication: ABDOMINAL PAIN
  14. BENADRYL                           /00000402/ [Concomitant]
     Indication: ALLERGY PROPHYLAXIS
     Dosage: , 25-50 MG UNK
     Route: 042
     Dates: start: 20120608, end: 20120624
  15. BENADRYL                           /00000402/ [Concomitant]
     Indication: RASH
  16. BENADRYL                           /00000402/ [Concomitant]
     Indication: RASH
     Dosage: UNK, 1-3 APPLICATIONS
     Route: 061
     Dates: start: 20120618
  17. HYDROCORTISONE [Concomitant]
     Indication: ALLERGY PROPHYLAXIS
     Dosage: UNK, 50-150 MG
     Route: 042
     Dates: start: 20120608, end: 20120724
  18. IMIPENEM CILASTATIN                /00820501/ [Concomitant]
     Indication: PNEUMONIA
     Dosage: , 500-2000 MGUNK
     Route: 042
     Dates: start: 20120615, end: 20120618
  19. IMIPENEM CILASTATIN                /00820501/ [Concomitant]
     Indication: ANTIBIOTIC PROPHYLAXIS
  20. ZOSYN [Concomitant]
     Indication: PNEUMONIA
     Dosage: UNK, 4.5-22.5 MG
     Route: 042
     Dates: start: 20120614, end: 20120624
  21. ZOSYN [Concomitant]
     Indication: ANTIBIOTIC PROPHYLAXIS
  22. AZITHROMYCIN [Concomitant]
     Indication: PNEUMONIA
     Dosage: 250 MG, UNKNOWN/D
     Route: 048
     Dates: start: 20120607, end: 20120616
  23. AZITHROMYCIN [Concomitant]
     Indication: ANTIBIOTIC PROPHYLAXIS
  24. VANCOMYCIN [Concomitant]
     Indication: PNEUMONIA
     Dosage: 2000 MG, UNKNOWN/D
     Route: 042
     Dates: start: 20120608, end: 20120611
  25. VANCOMYCIN [Concomitant]
     Indication: ANTIBIOTIC PROPHYLAXIS
  26. CEFEPIME [Concomitant]
     Indication: PNEUMONIA
     Dosage: , 2-6 GUNK
     Route: 042
     Dates: start: 20120607, end: 20120614
  27. CEFEPIME [Concomitant]
     Indication: ANTIBIOTIC PROPHYLAXIS
  28. CHLORHEXIDINE [Concomitant]
     Indication: DENTAL DISORDER PROPHYLAXIS
     Dosage: UNK, 10-20 MG
     Route: 048
     Dates: start: 20120607
  29. TUSSIONEX                          /00004701/ [Concomitant]
     Indication: COUGH
     Dosage: 5 ML, PRN
     Dates: start: 20120608, end: 20120802
  30. LASIX                              /00032601/ [Concomitant]
     Indication: OEDEMA
     Dosage: 10 MG, UNKNOWN/D
     Route: 042
     Dates: start: 20120611, end: 20120614
  31. FENTANYL [Concomitant]
     Indication: SEDATION
     Dosage: 125 MG, UNKNOWN/D
     Route: 042
     Dates: start: 20120608, end: 20120608
  32. LIDOCAINE [Concomitant]
     Indication: PAIN
     Dosage: 3 ML, UNKNOWN/D
     Route: 055
     Dates: start: 20120608, end: 20120608
  33. VERSED [Concomitant]
     Indication: SEDATION
     Dosage: 2 MG, UNKNOWN/D
     Route: 048
     Dates: start: 20120608, end: 20120608
  34. ZOFRAN                             /00955301/ [Concomitant]
     Indication: NAUSEA
     Dosage: 4 MEQ/ML, UNKNOWN/D
     Route: 042
     Dates: start: 20120610, end: 20120611
  35. RITALIN [Concomitant]
     Indication: DEPRESSION
     Dosage: UNK, 5-20 MG
     Route: 048
     Dates: start: 20120618, end: 20120621
  36. TESSALON PERLE [Concomitant]
     Indication: COUGH
     Dosage: UNK, 100-600 MG
     Route: 048
     Dates: start: 20120618
  37. MAGNESIUM SULFATE [Concomitant]
     Indication: MINERAL SUPPLEMENTATION
     Dosage: 2 G, PRN
     Route: 042
     Dates: start: 20120608, end: 20120801
  38. POTASSIUM CHLORIDE [Concomitant]
     Indication: MINERAL SUPPLEMENTATION
     Dosage: UNK, 10-20 MEQ
     Route: 042
     Dates: start: 20120607, end: 20120801
  39. POTASSIUM [Concomitant]
     Indication: MINERAL SUPPLEMENTATION
     Dosage: 40 MEQ, UNKNOWN/D
     Route: 048
     Dates: start: 20120607, end: 20120613
  40. NORMAL SALINE [Concomitant]
     Indication: FLUID REPLACEMENT
     Dosage: UNK, 75-500 ML
     Route: 042
     Dates: start: 20120607, end: 20120730
  41. VITAMIN K                          /00032401/ [Concomitant]
     Indication: VITAMIN SUPPLEMENTATION
     Dosage: 5 MG, UNKNOWN/D
     Route: 048
     Dates: start: 20120618, end: 20120624

REACTIONS (1)
  - Disease progression [Unknown]
